FAERS Safety Report 4414509-8 (Version None)
Quarter: 2004Q2

REPORT INFORMATION
  Report Type: 
  Country: None (occurrence: None)
  Receive Date: 20040630
  Receipt Date: 20040428
  Transmission Date: 20050107
  Serious: Yes (Other)
  Sender: FDA-Public Use
  Company Number: 2004029159

PATIENT
  Age: 24 Year
  Sex: Female
  Weight: 75.2971 kg

DRUGS (2)
  1. ZOLOFT [Suspect]
     Indication: DEPRESSION
     Dosage: 100 MG (1 IN 1 D), ORAL
     Route: 048
     Dates: start: 20040428
  2. ZOLPIDEM TARTRATE [Concomitant]

REACTIONS (1)
  - DYSTONIA [None]
